FAERS Safety Report 26151214 (Version 1)
Quarter: 2025Q4

REPORT INFORMATION
  Report Type: Spontaneous
  Country: US (occurrence: US)
  Receive Date: 20251212
  Receipt Date: 20251212
  Transmission Date: 20260117
  Serious: No
  Sender: BIOTEST
  Company Number: US-BIOTEST-016135

PATIENT
  Age: 51 Year
  Sex: Female

DRUGS (4)
  1. YIMMUGO [Suspect]
     Active Substance: HUMAN IMMUNOGLOBULIN G-DIRA
     Indication: Dermatomyositis
     Dosage: C795304P01 + C795314P01
     Dates: start: 20251029, end: 20251029
  2. TYLENOL [Concomitant]
     Active Substance: ACETAMINOPHEN
     Indication: Premedication
  3. SODIUM CHLORIDE [Concomitant]
     Active Substance: SODIUM CHLORIDE
     Indication: Premedication
  4. GAMMAGARD [Concomitant]
     Active Substance: HUMAN IMMUNOGLOBULIN G
     Indication: Dermatomyositis

REACTIONS (3)
  - Chest pain [Recovered/Resolved]
  - Rash [Recovered/Resolved]
  - Product use in unapproved indication [Unknown]

NARRATIVE: CASE EVENT DATE: 20251029
